FAERS Safety Report 11841530 (Version 2)
Quarter: 2016Q1

REPORT INFORMATION
  Report Type: Spontaneous
  Country: TR (occurrence: TR)
  Receive Date: 20151216
  Receipt Date: 20160208
  Transmission Date: 20160526
  Serious: Yes (Hospitalization)
  Sender: FDA-Public Use
  Company Number: TR-MYLANLABS-2015M1044881

PATIENT

DRUGS (1)
  1. PREDNISOLONE. [Suspect]
     Active Substance: PREDNISOLONE
     Indication: PRODUCT USED FOR UNKNOWN INDICATION
     Dosage: 5 MG/DAY
     Route: 048

REACTIONS (5)
  - Cushing^s syndrome [Unknown]
  - Hypercalcaemia [Recovered/Resolved]
  - Adrenal atrophy [Recovering/Resolving]
  - Withdrawal syndrome [Unknown]
  - Medication error [Unknown]
